FAERS Safety Report 6232881-3 (Version None)
Quarter: 2009Q2

REPORT INFORMATION
  Report Type: 
  Country: None (occurrence: None)
  Receive Date: 20090612
  Receipt Date: 20090612
  Transmission Date: 20091009
  Serious: No
  Sender: FDA-Public Use
  Company Number: None

PATIENT
  Age: 31 Year
  Sex: Male
  Weight: 101.6057 kg

DRUGS (2)
  1. BIMATOPROST [Suspect]
     Indication: EYE DISORDER
     Dosage: 15 DROPS DAILY PO
     Route: 048
  2. LATISSE [Suspect]

REACTIONS (4)
  - BURNING SENSATION [None]
  - EYE IRRITATION [None]
  - PENIS DISORDER [None]
  - PRURITUS GENITAL [None]
